FAERS Safety Report 10049830 (Version 1)
Quarter: 2014Q1

REPORT INFORMATION
  Report Type: Spontaneous
  Country: US (occurrence: None)
  Receive Date: 20140331
  Receipt Date: 20140331
  Transmission Date: 20141002
  Serious: Yes (Hospitalization)
  Sender: FDA-Public Use
  Company Number: None

PATIENT
  Age: 9 Year
  Sex: Male
  Weight: 27.5 kg

DRUGS (2)
  1. DEXAMETHASONE [Suspect]
     Dates: end: 20140322
  2. VINCRISTINE SULFATE [Suspect]
     Dates: end: 20140318

REACTIONS (15)
  - Abdominal pain [None]
  - Hemianopia [None]
  - Muscular weakness [None]
  - Agitation [None]
  - Headache [None]
  - Bradycardia [None]
  - Sinus bradycardia [None]
  - Vision blurred [None]
  - Depressed level of consciousness [None]
  - Convulsion [None]
  - Loss of consciousness [None]
  - Posterior reversible encephalopathy syndrome [None]
  - Hypertension [None]
  - Visual impairment [None]
  - Respiratory failure [None]
